FAERS Safety Report 4924040-9 (Version None)
Quarter: 2006Q1

REPORT INFORMATION
  Report Type: 
  Country: None (occurrence: None)
  Receive Date: 20060221
  Receipt Date: 20060208
  Transmission Date: 20060701
  Serious: Yes (Death, Hospitalization)
  Sender: FDA-Public Use
  Company Number: HQWYE671322NOV05

PATIENT
  Age: 50 Year
  Sex: Male

DRUGS (2)
  1. EFFEXOR [Suspect]
     Indication: DEPRESSION
     Dosage: TOOK SOME EXTRA PILLS, ORAL
     Route: 048
     Dates: start: 20050701, end: 20050701
  2. IBUPROFEN [Concomitant]

REACTIONS (19)
  - ABDOMINAL PAIN [None]
  - ASPIRATION [None]
  - ASTHENIA [None]
  - BLOOD PRESSURE DIASTOLIC DECREASED [None]
  - CARDIAC ARREST [None]
  - CATARACT [None]
  - DEPRESSED MOOD [None]
  - DRUG TOXICITY [None]
  - HAEMORRHAGE [None]
  - INTENTIONAL OVERDOSE [None]
  - INTENTIONAL SELF-INJURY [None]
  - IRRITABILITY [None]
  - POLYSUBSTANCE ABUSE [None]
  - PULSE ABNORMAL [None]
  - RESTLESSNESS [None]
  - SELF INJURIOUS BEHAVIOUR [None]
  - VENTRICULAR FIBRILLATION [None]
  - VENTRICULAR TACHYCARDIA [None]
  - VOMITING [None]
